FAERS Safety Report 9460595 (Version 1)
Quarter: 2013Q3

REPORT INFORMATION
  Report Type: Spontaneous
  Country: IT (occurrence: FR)
  Receive Date: 20130815
  Receipt Date: 20130815
  Transmission Date: 20140515
  Serious: Yes (Hospitalization)
  Sender: FDA-Public Use
  Company Number: FR-FRI-1000047772

PATIENT
  Age: 75 Year
  Sex: Female

DRUGS (6)
  1. NEBIVOLOL [Suspect]
     Indication: HYPERTENSION
     Dosage: 5 MG
     Route: 048
     Dates: start: 20121113, end: 20130711
  2. RASILEZ [Suspect]
     Indication: HYPERTENSION
     Dosage: 900 MG
     Route: 048
     Dates: start: 201212, end: 20130709
  3. LERCAN [Suspect]
     Indication: HYPERTENSION
     Dosage: 10 MG
     Route: 048
     Dates: start: 20121203
  4. TAMIK [Concomitant]
     Indication: MIGRAINE
     Route: 048
     Dates: start: 1979, end: 201210
  5. LEXOMIL [Concomitant]
     Dosage: 0.75 MG
     Route: 048
     Dates: start: 2009
  6. ANAFRANIL [Concomitant]
     Indication: DEPRESSION
     Dosage: 5 MG
     Route: 048
     Dates: start: 2009, end: 201306

REACTIONS (1)
  - Orthostatic hypotension [Recovered/Resolved]
